FAERS Safety Report 5236961-0 (Version None)
Quarter: 2007Q1

REPORT INFORMATION
  Report Type: 
  Country: None (occurrence: None)
  Receive Date: 20070213
  Receipt Date: 20070208
  Transmission Date: 20070707
  Serious: Yes (Life-Threatening, Hospitalization)
  Sender: FDA-Public Use
  Company Number: PHFR2007GB00736

PATIENT
  Age: 61 Year
  Sex: Male

DRUGS (5)
  1. VOLTAREN [Suspect]
     Indication: HERNIA REPAIR
     Dosage: 50 MG, UNK
     Route: 042
  2. AUGMENTIN '125' [Suspect]
     Indication: HERNIA REPAIR
     Dosage: 2 ML
     Route: 042
     Dates: start: 20070124, end: 20070124
  3. FENTANYL [Concomitant]
  4. MORPHINE [Concomitant]
  5. PROPOFOL [Concomitant]

REACTIONS (4)
  - ANAPHYLACTIC REACTION [None]
  - BRADYCARDIA [None]
  - CARDIAC ARREST [None]
  - HYPOTENSION [None]
